FAERS Safety Report 5619630-4 (Version None)
Quarter: 2008Q1

REPORT INFORMATION
  Report Type: 
  Country: None (occurrence: None)
  Receive Date: 20080205
  Receipt Date: 20080205
  Transmission Date: 20080703
  Serious: Yes (Other)
  Sender: FDA-Public Use
  Company Number: None

PATIENT
  Sex: Male
  Weight: 96.6162 kg

DRUGS (1)
  1. VARENICLINE [Suspect]
     Indication: TOBACCO ABUSE
     Dosage: STARTING MONTH PACK

REACTIONS (6)
  - ALCOHOL USE [None]
  - ANGER [None]
  - ANHEDONIA [None]
  - MOOD ALTERED [None]
  - SOCIAL AVOIDANT BEHAVIOUR [None]
  - SOMNOLENCE [None]
